APPROVED DRUG PRODUCT: FONDAPARINUX SODIUM
Active Ingredient: FONDAPARINUX SODIUM
Strength: 7.5MG/0.6ML
Dosage Form/Route: SOLUTION;SUBCUTANEOUS
Application: A216493 | Product #003
Applicant: HANGZHOU ZHONGMEI HUADONG PHARMACEUTICAL CO LTD
Approved: Aug 19, 2024 | RLD: No | RS: No | Type: DISCN